FAERS Safety Report 5104465-1 (Version None)
Quarter: 2006Q3

REPORT INFORMATION
  Report Type: 
  Country: None (occurrence: None)
  Receive Date: 20060911
  Receipt Date: 20060828
  Transmission Date: 20061208
  Serious: Yes (Other)
  Sender: FDA-Public Use
  Company Number: 229284

PATIENT
  Age: 64 Year
  Sex: Male

DRUGS (1)
  1. AVASTIN [Suspect]
     Indication: MACULAR DEGENERATION
     Dosage: 0.05 ML, INTRAVITREAL
     Route: 050

REACTIONS (1)
  - DETACHMENT OF RETINAL PIGMENT EPITHELIUM [None]
